FAERS Safety Report 7296547-3 (Version None)
Quarter: 2011Q1

REPORT INFORMATION
  Report Type: 
  Country: None (occurrence: None)
  Receive Date: 20110216
  Receipt Date: 20110204
  Transmission Date: 20110831
  Serious: Yes (Other)
  Sender: FDA-Public Use
  Company Number: PHFR2011GB01141

PATIENT

DRUGS (1)
  1. SANDIMMUNE [Suspect]
     Dosage: UNK

REACTIONS (1)
  - HYPOKALAEMIA [None]
